FAERS Safety Report 9228520 (Version 1)
Quarter: 2013Q2

REPORT INFORMATION
  Report Type: Spontaneous
  Country: BD (occurrence: BD)
  Receive Date: 20130412
  Receipt Date: 20130412
  Transmission Date: 20140414
  Serious: Yes (Hospitalization, Congenital Anomaly)
  Sender: FDA-Public Use
  Company Number: BD-GLAXOSMITHKLINE-B0882923A

PATIENT
  Sex: Male

DRUGS (2)
  1. CEFUROXIME AXETIL [Suspect]
     Indication: URINARY TRACT INFECTION
     Dosage: 500MG TWICE PER DAY
     Route: 064
  2. CEFUROXIME [Suspect]
     Indication: DIARRHOEA

REACTIONS (10)
  - Drug eruption [Recovering/Resolving]
  - Blister [Unknown]
  - Rash macular [Unknown]
  - Papule [Unknown]
  - Skin lesion [Unknown]
  - Swelling [Unknown]
  - Erythema [Unknown]
  - Restlessness [Unknown]
  - Diarrhoea [Unknown]
  - Foetal exposure during pregnancy [Unknown]
